FAERS Safety Report 18973980 (Version 1)
Quarter: 2021Q1

REPORT INFORMATION
  Report Type: Spontaneous
  Country: DE (occurrence: DE)
  Receive Date: 20210305
  Receipt Date: 20210305
  Transmission Date: 20210420
  Serious: Yes (Other)
  Sender: FDA-Public Use
  Company Number: DE-TAKEDA-2021TUS006558

PATIENT
  Age: 24 Year
  Sex: Female

DRUGS (3)
  1. ENTYVIO [Suspect]
     Active Substance: VEDOLIZUMAB
     Indication: COLITIS ULCERATIVE
     Dosage: UNK
     Route: 058
  2. ENTYVIO [Suspect]
     Active Substance: VEDOLIZUMAB
     Indication: COLITIS ULCERATIVE
     Dosage: UNK
     Route: 065
     Dates: start: 202012
  3. CORTISONE [Suspect]
     Active Substance: CORTISONE
     Indication: PRODUCT USED FOR UNKNOWN INDICATION
     Dosage: UNK
     Route: 065
     Dates: end: 202101

REACTIONS (10)
  - Feeling cold [Unknown]
  - Mucous stools [Unknown]
  - Abdominal pain upper [Not Recovered/Not Resolved]
  - Poor peripheral circulation [Unknown]
  - Rash macular [Unknown]
  - Gastrointestinal inflammation [Unknown]
  - Tonsillitis bacterial [Unknown]
  - Gastrointestinal pain [Unknown]
  - Acne [Unknown]
  - Cystitis [Unknown]

NARRATIVE: CASE EVENT DATE: 202101
